FAERS Safety Report 26072124 (Version 1)
Quarter: 2025Q4

REPORT INFORMATION
  Report Type: Spontaneous
  Country: US (occurrence: US)
  Receive Date: 20251120
  Receipt Date: 20251120
  Transmission Date: 20260118
  Serious: Yes (Disabling, Other)
  Sender: NOVO NORDISK
  Company Number: US-NOVOPROD-1567812

PATIENT
  Sex: Male

DRUGS (4)
  1. LEVEMIR [Suspect]
     Active Substance: INSULIN DETEMIR
     Indication: Type 2 diabetes mellitus
     Dosage: 25 IU, QD
     Route: 058
     Dates: start: 2013
  2. NOVOLOG [Suspect]
     Active Substance: INSULIN ASPART
     Dosage: 12 IU
  3. NOVOLOG [Suspect]
     Active Substance: INSULIN ASPART
     Dosage: UNK, QID
  4. NOVOLOG [Suspect]
     Active Substance: INSULIN ASPART
     Indication: Type 2 diabetes mellitus
     Dosage: 10 IU, TID
     Dates: start: 2012

REACTIONS (7)
  - Macular degeneration [Recovered/Resolved]
  - Cardiac failure congestive [Unknown]
  - Critical illness [Unknown]
  - Illness [Unknown]
  - Weight fluctuation [Unknown]
  - Renal disorder [Unknown]
  - Glycosylated haemoglobin increased [Recovered/Resolved]
